FAERS Safety Report 13416744 (Version 1)
Quarter: 2017Q2

REPORT INFORMATION
  Report Type: Spontaneous
  Country: US (occurrence: US)
  Receive Date: 20170407
  Receipt Date: 20170407
  Transmission Date: 20170830
  Serious: Yes (Hospitalization, Other)
  Sender: FDA-Public Use
  Company Number: US-UNITED THERAPEUTICS-UNT-2017-004155

PATIENT
  Age: 49 Year
  Sex: Female
  Weight: 104.31 kg

DRUGS (4)
  1. ADEMPAS [Concomitant]
     Active Substance: RIOCIGUAT
     Indication: PRODUCT USED FOR UNKNOWN INDICATION
  2. REMODULIN [Suspect]
     Active Substance: TREPROSTINIL
     Indication: PULMONARY HYPERTENSION
     Dosage: 0.006 ?G/KG, CONTINUING
     Route: 058
     Dates: start: 20170310
  3. REMODULIN [Suspect]
     Active Substance: TREPROSTINIL
     Dosage: 0.008 ?G/KG, CONTINUING
     Route: 058
     Dates: start: 20170317
  4. ELIQUIS [Concomitant]
     Active Substance: APIXABAN
     Indication: PRODUCT USED FOR UNKNOWN INDICATION

REACTIONS (6)
  - Respiratory tract congestion [Unknown]
  - Pyrexia [Unknown]
  - Pain [Unknown]
  - Dyspnoea [Unknown]
  - Blood glucose decreased [Unknown]
  - Sinusitis [Unknown]

NARRATIVE: CASE EVENT DATE: 201703
